FAERS Safety Report 12453082 (Version 2)
Quarter: 2016Q2

REPORT INFORMATION
  Report Type: Spontaneous
  Country: JP (occurrence: JP)
  Receive Date: 20160609
  Receipt Date: 20160621
  Transmission Date: 20160815
  Serious: Yes (Other)
  Sender: FDA-Public Use
  Company Number: PHJP2016JP014604

PATIENT
  Age: 24 Year
  Sex: Female
  Weight: 75 kg

DRUGS (9)
  1. FENTANYL. [Concomitant]
     Active Substance: FENTANYL
     Indication: ANALGESIC THERAPY
     Dosage: 40 UG/HR, UNK
     Route: 041
  2. METOPROLOL. [Suspect]
     Active Substance: METOPROLOL
     Indication: CARDIAC FAILURE
     Dosage: 20 MG, UNK
     Route: 048
  3. REMIFENTANIL [Suspect]
     Active Substance: REMIFENTANIL
     Indication: MAINTENANCE OF ANAESTHESIA
     Dosage: 450 - 1125 UG/HR, (0.1-0.25/MCG/KG/MIN)
     Route: 065
  4. ROPIVACAINE [Concomitant]
     Active Substance: ROPIVACAINE
     Indication: ANALGESIC THERAPY
     Dosage: 20 ML, UNK
     Route: 065
  5. REMIFENTANIL [Suspect]
     Active Substance: REMIFENTANIL
     Dosage: 0.3 UG/KG, UNK
     Route: 065
  6. RANITIDINE HYDROCHLORIDE. [Suspect]
     Active Substance: RANITIDINE HYDROCHLORIDE
     Indication: ANAESTHETIC PREMEDICATION
     Dosage: 150 MG, UNK
     Route: 048
  7. PROPOFOL. [Suspect]
     Active Substance: PROPOFOL
     Indication: MAINTENANCE OF ANAESTHESIA
     Dosage: 150 MG, (2 - 3 NG/ML)
     Route: 041
  8. ROCURONIUM BROMIDE. [Suspect]
     Active Substance: ROCURONIUM BROMIDE
     Indication: PRODUCT USED FOR UNKNOWN INDICATION
     Dosage: 70 MG, UNK
     Route: 065
  9. FUROSEMIDE. [Concomitant]
     Active Substance: FUROSEMIDE
     Indication: PRODUCT USED FOR UNKNOWN INDICATION
     Dosage: 20 MG, UNK
     Route: 048

REACTIONS (6)
  - Mitral valve incompetence [Unknown]
  - Concomitant disease aggravated [Unknown]
  - Decreased activity [Unknown]
  - Supraventricular extrasystoles [Unknown]
  - Cardiac output decreased [Unknown]
  - Maternal exposure during pregnancy [Unknown]
